FAERS Safety Report 5472448-8 (Version None)
Quarter: 2007Q3

REPORT INFORMATION
  Report Type: 
  Country: None (occurrence: None)
  Receive Date: 20070926
  Receipt Date: 20070918
  Transmission Date: 20080115
  Serious: Yes (Hospitalization)
  Sender: FDA-Public Use
  Company Number: TPG2007A00218

PATIENT
  Sex: Female

DRUGS (5)
  1. ACTOS [Suspect]
     Indication: DIABETES MELLITUS
     Dosage: 30 MG (30 MG, 1 IN 1 D) PER ORAL
     Route: 048
     Dates: end: 20070315
  2. XIPAMIDE (XIPAMIDE) [Concomitant]
  3. GLYBURIDE [Concomitant]
  4. METO-TABLINEN (METOPROLOL TARTRATE) [Concomitant]
  5. MESCORIT (METFORMIN HYDROCHLORIDE) [Concomitant]

REACTIONS (18)
  - ABDOMINAL PAIN [None]
  - ASCITES [None]
  - ASPARTATE AMINOTRANSFERASE INCREASED [None]
  - DIARRHOEA [None]
  - DYSURIA [None]
  - FAECES DISCOLOURED [None]
  - GAMMA-GLUTAMYLTRANSFERASE INCREASED [None]
  - HAEMATURIA [None]
  - HEPATOCELLULAR DAMAGE [None]
  - HYPOKALAEMIA [None]
  - HYPONATRAEMIA [None]
  - MUCOUS STOOLS [None]
  - OEDEMA PERIPHERAL [None]
  - PAINFUL DEFAECATION [None]
  - URINARY TRACT INFECTION [None]
  - VARICES OESOPHAGEAL [None]
  - WAIST CIRCUMFERENCE INCREASED [None]
  - WHITE BLOOD CELL COUNT INCREASED [None]
